FAERS Safety Report 8167965-6 (Version None)
Quarter: 2012Q1

REPORT INFORMATION
  Report Type: 
  Country: None (occurrence: None)
  Receive Date: 20120227
  Receipt Date: 20120222
  Transmission Date: 20120608
  Serious: Yes (Death)
  Sender: FDA-Public Use
  Company Number: JP-GLAXOSMITHKLINE-B0768026A

PATIENT
  Sex: Female

DRUGS (4)
  1. LULLAN [Concomitant]
     Dosage: 1IUAX PER DAY
     Route: 048
  2. SEROQUEL [Concomitant]
     Dosage: 100MG PER DAY
     Route: 048
  3. ZYPREXA [Concomitant]
     Dosage: 1IUAX PER DAY
     Route: 048
  4. LAMICTAL [Suspect]
     Indication: BIPOLAR I DISORDER
     Dosage: 25MG PER DAY
     Route: 048
     Dates: start: 20111124

REACTIONS (1)
  - COMPLETED SUICIDE [None]
